FAERS Safety Report 4845943-X (Version None)
Quarter: 2005Q4

REPORT INFORMATION
  Report Type: 
  Country: None (occurrence: None)
  Receive Date: 20051202
  Receipt Date: 20051202
  Transmission Date: 20060501
  Serious: Yes (Other)
  Sender: FDA-Public Use
  Company Number: None

PATIENT
  Age: 74 Year
  Sex: Female
  Weight: 167.6 kg

DRUGS (1)
  1. LYMPHAZURIN [Suspect]
     Indication: DIAGNOSTIC PROCEDURE
     Dosage: X1 DOSE
     Dates: start: 20050411

REACTIONS (3)
  - OXYGEN SATURATION DECREASED [None]
  - PO2 INCREASED [None]
  - PROCEDURAL COMPLICATION [None]
